FAERS Safety Report 9226175 (Version 1)
Quarter: 2013Q2

REPORT INFORMATION
  Report Type: Spontaneous
  Country: FR (occurrence: FR)
  Receive Date: 20130411
  Receipt Date: 20130411
  Transmission Date: 20140414
  Serious: Yes (Death, Hospitalization)
  Sender: FDA-Public Use
  Company Number: FR-CELGENEUS-056-50794-13040305

PATIENT
  Sex: 0

DRUGS (3)
  1. VIDAZA [Suspect]
     Indication: MYELODYSPLASTIC SYNDROME
     Dosage: 75 MILLIGRAM/SQ. METER
     Route: 065
     Dates: start: 200501, end: 200803
  2. LEVOFLOXACIN [Concomitant]
     Indication: PROPHYLAXIS
     Dosage: 500 MILLIGRAM
     Route: 065
     Dates: start: 200808, end: 201111
  3. POSACONAZOLE [Concomitant]
     Indication: PROPHYLAXIS
     Dosage: 600 MILLIGRAM
     Route: 065
     Dates: start: 200803, end: 201111

REACTIONS (2)
  - Sepsis [Fatal]
  - Infection [Fatal]
